FAERS Safety Report 20746144 (Version 1)
Quarter: 2022Q2

REPORT INFORMATION
  Report Type: Spontaneous
  Country: US (occurrence: US)
  Receive Date: 20220425
  Receipt Date: 20220425
  Transmission Date: 20220720
  Serious: No
  Sender: FDA-Public Use
  Company Number: US-PFIZER INC-202200577643

PATIENT
  Age: 60 Year
  Sex: Female

DRUGS (4)
  1. FLUCONAZOLE [Suspect]
     Active Substance: FLUCONAZOLE
     Indication: Balanitis candida
     Dosage: UNK
  2. FLUCONAZOLE [Suspect]
     Active Substance: FLUCONAZOLE
     Indication: Onychomycosis
  3. HERBALS [Suspect]
     Active Substance: HERBALS
     Indication: Balanitis candida
     Dosage: UNK
  4. HERBALS [Suspect]
     Active Substance: HERBALS
     Indication: Onychomycosis

REACTIONS (1)
  - Drug ineffective [Unknown]
